FAERS Safety Report 13739863 (Version 1)
Quarter: 2017Q3

REPORT INFORMATION
  Report Type: Spontaneous
  Country: US (occurrence: US)
  Receive Date: 20170710
  Receipt Date: 20170710
  Transmission Date: 20171127
  Serious: Yes (Death)
  Sender: FDA-Public Use
  Company Number: None

PATIENT
  Age: 58 Year
  Sex: Male
  Weight: 74.84 kg

DRUGS (3)
  1. OTEZLA [Suspect]
     Active Substance: APREMILAST
  2. Z PACK [Concomitant]
     Active Substance: AZITHROMYCIN DIHYDRATE
  3. BLOOD PRESSURE MEDS [Concomitant]

REACTIONS (7)
  - Vomiting [None]
  - Hyperhidrosis [None]
  - Pain in extremity [None]
  - Nausea [None]
  - Pyrexia [None]
  - Cold sweat [None]
  - Blood glucose increased [None]

NARRATIVE: CASE EVENT DATE: 20170314
